FAERS Safety Report 5823900-4 (Version None)
Quarter: 2008Q3

REPORT INFORMATION
  Report Type: 
  Country: None (occurrence: None)
  Receive Date: 20080724
  Receipt Date: 20080709
  Transmission Date: 20090109
  Serious: Yes (Death)
  Sender: FDA-Public Use
  Company Number: 14939

PATIENT
  Age: 58 Year
  Sex: Male

DRUGS (4)
  1. MORPHINE SULFATE [Suspect]
     Indication: CANCER PAIN
     Dosage: 120 MG TID ORALLY
     Route: 048
     Dates: start: 20070401, end: 20080330
  2. MORPHINE SULFATE [Suspect]
     Indication: LUNG NEOPLASM MALIGNANT
     Dosage: 120 MG TID ORALLY
     Route: 048
     Dates: start: 20070401, end: 20080330
  3. CYMBALTA [Concomitant]
  4. SENECA [Concomitant]

REACTIONS (2)
  - CARDIAC ARREST [None]
  - PHARMACEUTICAL PRODUCT COMPLAINT [None]
